FAERS Safety Report 4813405-1 (Version None)
Quarter: 2005Q4

REPORT INFORMATION
  Report Type: 
  Country: None (occurrence: None)
  Receive Date: 20051028
  Receipt Date: 20051012
  Transmission Date: 20060501
  Serious: Yes (Death, Other)
  Sender: FDA-Public Use
  Company Number: PHBS2005JP15084

PATIENT
  Age: 70 Year
  Sex: Female

DRUGS (2)
  1. DIURETICS [Concomitant]
  2. GLEEVEC [Suspect]
     Indication: LEIOMYOSARCOMA
     Dosage: 400 MG/D
     Route: 048

REACTIONS (9)
  - ASCITES [None]
  - BLOOD BILIRUBIN INCREASED [None]
  - DEPRESSED LEVEL OF CONSCIOUSNESS [None]
  - DISSEMINATED INTRAVASCULAR COAGULATION [None]
  - INFECTION [None]
  - JAUNDICE CHOLESTATIC [None]
  - MALIGNANT NEOPLASM PROGRESSION [None]
  - PLEURAL EFFUSION [None]
  - VOMITING [None]
